FAERS Safety Report 9849698 (Version 5)
Quarter: 2014Q2

REPORT INFORMATION
  Report Type: Spontaneous
  Country: US (occurrence: None)
  Receive Date: 20140124
  Receipt Date: 20140407
  Transmission Date: 20141212
  Serious: Yes (Hospitalization)
  Sender: FDA-Public Use
  Company Number: 2014SGN00027

PATIENT
  Age: 27 Year
  Sex: Male
  Weight: 100 kg

DRUGS (5)
  1. BRENTUXIMAB VEDOTIN (BRENTUXIMAB VEDOTIN) INJECTION [Suspect]
     Indication: HODGKIN^S DISEASE
     Dosage: 1.8 MG/KG, Q21D, INTRAVENOUS
     Route: 042
     Dates: start: 20131217, end: 20140107
  2. BENDAMUSTINE HYDROCHLORIDE [Suspect]
     Indication: HODGKIN^S DISEASE
     Dosage: 90 MG/M2, Q21D, INTRAVENOUS
     Route: 042
     Dates: start: 20131217, end: 20140107
  3. DEXAMETHASONE (DEXAMETHSONE) [Concomitant]
  4. ONDANSETRON (ONDANSETRON) [Concomitant]
  5. ATIVAN (LORAZEPAM) [Concomitant]

REACTIONS (26)
  - Dyspnoea [None]
  - Neck pain [None]
  - Feeling hot [None]
  - Infusion related reaction [None]
  - Chills [None]
  - Rash erythematous [None]
  - Body temperature increased [None]
  - Self-medication [None]
  - Heart rate increased [None]
  - Aspartate aminotransferase increased [None]
  - Alanine aminotransferase increased [None]
  - Drug reaction with eosinophilia and systemic symptoms [None]
  - Pyrexia [None]
  - Back pain [None]
  - Blood alkaline phosphatase increased [None]
  - Chest discomfort [None]
  - Lip swelling [None]
  - Eye swelling [None]
  - Eyelid oedema [None]
  - Drug hypersensitivity [None]
  - Rash papular [None]
  - Rash morbilliform [None]
  - Urticaria [None]
  - Generalised erythema [None]
  - Flushing [None]
  - Platelet count decreased [None]
